FAERS Safety Report 6212278-2 (Version None)
Quarter: 2009Q2

REPORT INFORMATION
  Report Type: 
  Country: None (occurrence: None)
  Receive Date: 20090529
  Receipt Date: 20090514
  Transmission Date: 20091009
  Serious: Yes (Death)
  Sender: FDA-Public Use
  Company Number: AE 2009-058

PATIENT
  Age: 91 Year
  Sex: Female

DRUGS (11)
  1. FAZACLO ODT [Suspect]
     Indication: BIPOLAR I DISORDER
     Dosage: 100 MG DAILY PO
     Route: 048
     Dates: start: 20060509, end: 20090219
  2. CATAPRES [Concomitant]
  3. NORVASC [Concomitant]
  4. DULCOLAX [Concomitant]
  5. FIBERLAX [Concomitant]
  6. FOLIC ACID [Concomitant]
  7. PRILOSEC [Concomitant]
  8. MIRALAX [Concomitant]
  9. TYLENOL (CAPLET) [Concomitant]
  10. TUMS [Concomitant]
  11. MORPHINE PRN [Concomitant]

REACTIONS (1)
  - FAILURE TO THRIVE [None]
